FAERS Safety Report 9192340 (Version 1)
Quarter: 2013Q1

REPORT INFORMATION
  Report Type: Spontaneous
  Country: US (occurrence: None)
  Receive Date: 20130326
  Receipt Date: 20130326
  Transmission Date: 20140127
  Serious: Yes (Other)
  Sender: FDA-Public Use
  Company Number: None

PATIENT
  Age: 24 Year
  Sex: Male
  Weight: 81.65 kg

DRUGS (1)
  1. FINASTERIDE 1MG MERCK [Suspect]
     Route: 048
     Dates: start: 20100801, end: 20100808

REACTIONS (3)
  - Erectile dysfunction [None]
  - Loss of libido [None]
  - Quality of life decreased [None]
